FAERS Safety Report 5677436-4 (Version None)
Quarter: 2008Q1

REPORT INFORMATION
  Report Type: 
  Country: None (occurrence: None)
  Receive Date: 20080324
  Receipt Date: 20080319
  Transmission Date: 20080703
  Serious: Yes (Other)
  Sender: FDA-Public Use
  Company Number: DE-BRISTOL-MYERS SQUIBB COMPANY-14077176

PATIENT
  Age: 34 Year
  Sex: Female

DRUGS (3)
  1. ABILIFY [Suspect]
     Indication: SCHIZOPHRENIFORM DISORDER
     Dosage: 10MG TAKEN FROM 12JUL05-06SEP05.
     Route: 048
  2. TREVILOR [Concomitant]
     Indication: DEPRESSION
     Route: 048
  3. RISPERDAL CONSTA [Concomitant]
     Indication: SCHIZOPHRENIA
     Route: 030
     Dates: start: 20050101, end: 20060906

REACTIONS (1)
  - PATHOLOGICAL GAMBLING [None]
